FAERS Safety Report 8347011-1 (Version None)
Quarter: 2012Q2

REPORT INFORMATION
  Report Type: 
  Country: None (occurrence: None)
  Receive Date: 20120509
  Receipt Date: 20120503
  Transmission Date: 20120825
  Serious: Yes (Other)
  Sender: FDA-Public Use
  Company Number: US-PURDUE-USA-2012-0086515

PATIENT
  Sex: Male

DRUGS (2)
  1. OXYCONTIN [Suspect]
     Indication: PAIN
     Dosage: 60 MG, EVERY 8 HOURS PRN
  2. OXYCONTIN [Suspect]
     Dosage: 30 MG, EVERY 8 HOURS PRN

REACTIONS (2)
  - ROAD TRAFFIC ACCIDENT [None]
  - LACERATION [None]
